FAERS Safety Report 22000853 (Version 1)
Quarter: 2023Q1

REPORT INFORMATION
  Report Type: Spontaneous
  Country: CN (occurrence: CN)
  Receive Date: 20230216
  Receipt Date: 20230216
  Transmission Date: 20230417
  Serious: Yes (Life-Threatening)
  Sender: FDA-Public Use
  Company Number: CN-002147023-NVSC2023CN036069

PATIENT
  Age: 57 Year
  Sex: Female
  Weight: 67 kg

DRUGS (1)
  1. SACUBITRIL\VALSARTAN [Suspect]
     Active Substance: SACUBITRIL\VALSARTAN
     Indication: Hypertension
     Dosage: 100.000 MG, QD
     Route: 048
     Dates: start: 20230209, end: 20230212

REACTIONS (2)
  - Dyspnoea [Recovering/Resolving]
  - Orthopnoea [Recovering/Resolving]

NARRATIVE: CASE EVENT DATE: 20230209
